FAERS Safety Report 4557915-3 (Version None)
Quarter: 2005Q1

REPORT INFORMATION
  Report Type: 
  Country: None (occurrence: None)
  Receive Date: 20050121
  Receipt Date: 20040126
  Transmission Date: 20050727
  Serious: Yes (Hospitalization)
  Sender: FDA-Public Use
  Company Number: US-BRISTOL-MYERS SQUIBB COMPANY-12486445

PATIENT
  Age: 48 Year
  Sex: Female

DRUGS (1)
  1. NEFAZODONE HCL [Suspect]
     Route: 048

REACTIONS (5)
  - AGITATION [None]
  - DEPRESSION [None]
  - DRUG INEFFECTIVE [None]
  - MEMORY IMPAIRMENT [None]
  - SUICIDE ATTEMPT [None]
